FAERS Safety Report 10777512 (Version 11)
Quarter: 2016Q1

REPORT INFORMATION
  Report Type: Report from Study
  Country: AT (occurrence: AT)
  Receive Date: 20150209
  Receipt Date: 20160223
  Transmission Date: 20160525
  Serious: Yes (Hospitalization)
  Sender: FDA-Public Use
  Company Number: PHHY2015AT011721

PATIENT
  Age: 63 Year
  Sex: Male
  Weight: 94.3 kg

DRUGS (7)
  1. TASIGNA [Suspect]
     Active Substance: NILOTINIB
     Dosage: 600 MG, (2-0-2)
     Route: 048
  2. TASIGNA [Suspect]
     Active Substance: NILOTINIB
     Indication: CHRONIC MYELOID LEUKAEMIA
     Dosage: 300 MG, QD
     Route: 048
     Dates: start: 20120808
  3. LISINOPRIL. [Concomitant]
     Active Substance: LISINOPRIL
     Dosage: 5 MG, QD
     Route: 065
  4. LISINOPRIL. [Concomitant]
     Active Substance: LISINOPRIL
     Indication: HYPERTENSION
     Dosage: 2.5 MG, UNK
     Route: 065
     Dates: start: 201203
  5. TASIGNA [Suspect]
     Active Substance: NILOTINIB
     Dosage: 150 MG, (2-0-2)
     Route: 048
  6. ALNA [Concomitant]
     Active Substance: TAMSULOSIN HYDROCHLORIDE
     Indication: BENIGN PROSTATIC HYPERPLASIA
     Dosage: 1 DF, QD
     Route: 065
     Dates: start: 201301
  7. FINASTERID [Concomitant]
     Indication: PRODUCT USED FOR UNKNOWN INDICATION
     Dosage: 5 MG, QD
     Route: 065

REACTIONS (9)
  - Hypercholesterolaemia [Unknown]
  - Nasopharyngitis [Unknown]
  - Musculoskeletal pain [Unknown]
  - Atrial fibrillation [Recovered/Resolved]
  - Pericardial effusion [Unknown]
  - Atrial fibrillation [Recovered/Resolved]
  - Sinus bradycardia [Unknown]
  - Upper respiratory tract infection [Unknown]
  - Hyperhidrosis [Unknown]

NARRATIVE: CASE EVENT DATE: 201310
